FAERS Safety Report 9466856 (Version 11)
Quarter: 2017Q3

REPORT INFORMATION
  Report Type: Report from Study
  Country: CA (occurrence: CA)
  Receive Date: 20130820
  Receipt Date: 20170810
  Transmission Date: 20171128
  Serious: Yes (Hospitalization, Other)
  Sender: FDA-Public Use
  Company Number: CA-ROCHE-1249427

PATIENT
  Age: 82 Year
  Sex: Female
  Weight: 64.8 kg

DRUGS (15)
  1. FOSAVANCE [Concomitant]
     Active Substance: ALENDRONATE SODIUM\CHOLECALCIFEROL
  2. RAMIPRIL. [Concomitant]
     Active Substance: RAMIPRIL
  3. ACETAMINOPHEN. [Concomitant]
     Active Substance: ACETAMINOPHEN
     Indication: PREMEDICATION
     Route: 048
     Dates: start: 20090514
  4. RITUXAN [Suspect]
     Active Substance: RITUXIMAB
     Dosage: FREQUENCY: DAY 1 AND 15
     Route: 042
     Dates: start: 20140604, end: 20140604
  5. RABEPRAZOLE [Concomitant]
     Active Substance: RABEPRAZOLE
  6. METHYLPREDNISOLONE. [Concomitant]
     Active Substance: METHYLPREDNISOLONE
     Indication: PREMEDICATION
     Route: 042
     Dates: start: 20090514
  7. SULFASALAZINE. [Concomitant]
     Active Substance: SULFASALAZINE
     Indication: RHEUMATOID ARTHRITIS
     Route: 048
  8. VERAPAMIL [Concomitant]
     Active Substance: VERAPAMIL HYDROCHLORIDE
  9. RITUXAN [Suspect]
     Active Substance: RITUXIMAB
     Dosage: FREQUENCY: DAY 1 AND 15
     Route: 042
     Dates: start: 20140605, end: 20160727
  10. BENADRYL [Concomitant]
     Active Substance: DIPHENHYDRAMINE HYDROCHLORIDE
     Indication: PREMEDICATION
     Route: 048
     Dates: start: 20090514
  11. ATROVENT [Concomitant]
     Active Substance: IPRATROPIUM BROMIDE
  12. RITUXAN [Suspect]
     Active Substance: RITUXIMAB
     Indication: RHEUMATOID ARTHRITIS
     Dosage: FREQUENCY:  DAY 1 AND DAY 15?11/JUN/2013 RECIEVED THE LAST DOSE PRIOR TO EVENT (DAY 1), MOST RECENT
     Route: 042
     Dates: start: 20090514
  13. HYDROCHLOROTHIAZIDE. [Concomitant]
     Active Substance: HYDROCHLOROTHIAZIDE
  14. ADVAIR HFA [Concomitant]
     Active Substance: FLUTICASONE PROPIONATE\SALMETEROL XINAFOATE
  15. VITAMIN C [Concomitant]
     Active Substance: ASCORBIC ACID

REACTIONS (19)
  - Vomiting [Recovered/Resolved]
  - Neutrophil count increased [Unknown]
  - Non-small cell lung cancer [Unknown]
  - Flatulence [Unknown]
  - Rheumatoid arthritis [Unknown]
  - Abdominal pain [Recovered/Resolved]
  - Chronic obstructive pulmonary disease [Not Recovered/Not Resolved]
  - Pneumonia [Recovered/Resolved]
  - Nausea [Unknown]
  - Sepsis [Unknown]
  - Fall [Unknown]
  - Chronic obstructive pulmonary disease [Recovered/Resolved]
  - Abdominal pain [Recovering/Resolving]
  - Constipation [Unknown]
  - Skin abrasion [Recovered/Resolved]
  - Diarrhoea [Recovered/Resolved]
  - Contusion [Unknown]
  - Renal cyst [Not Recovered/Not Resolved]
  - Gallbladder polyp [Not Recovered/Not Resolved]

NARRATIVE: CASE EVENT DATE: 201306
